FAERS Safety Report 21550658 (Version 1)
Quarter: 2022Q4

REPORT INFORMATION
  Report Type: Spontaneous
  Country: PL (occurrence: PL)
  Receive Date: 20221103
  Receipt Date: 20221103
  Transmission Date: 20230113
  Serious: Yes (Other)
  Sender: FDA-Public Use
  Company Number: PL-002147023-NVSC2022PL243798

PATIENT
  Age: 65 Year
  Sex: Male

DRUGS (7)
  1. RUXOLITINIB [Suspect]
     Active Substance: RUXOLITINIB
     Indication: Primary myelofibrosis
     Dosage: 5 MG, BID
     Route: 065
     Dates: start: 202203
  2. MIDOSTAURIN [Suspect]
     Active Substance: MIDOSTAURIN
     Indication: Systemic mastocytosis
     Dosage: 100 MG, BID (1ST CYCLE)
     Route: 048
     Dates: start: 202206
  3. MIDOSTAURIN [Suspect]
     Active Substance: MIDOSTAURIN
     Indication: Haematological neoplasm
     Dosage: UNK (2ND CYCLE)
     Route: 065
     Dates: start: 202207, end: 202208
  4. MIDOSTAURIN [Suspect]
     Active Substance: MIDOSTAURIN
     Dosage: UNK (3RD CYCLE)
     Route: 065
     Dates: start: 202208, end: 202209
  5. MIDOSTAURIN [Suspect]
     Active Substance: MIDOSTAURIN
     Dosage: UNK (4TH CYCLE)
     Route: 065
     Dates: start: 202209, end: 202210
  6. DANAZOL [Concomitant]
     Active Substance: DANAZOL
     Indication: Product used for unknown indication
     Dosage: 600 MG, QD
     Route: 065
     Dates: start: 202203
  7. PREDNISONE [Concomitant]
     Active Substance: PREDNISONE
     Indication: Product used for unknown indication
     Dosage: 0.5 MG/KG, QD
     Route: 065

REACTIONS (15)
  - Gastritis haemorrhagic [Unknown]
  - Gastrointestinal haemorrhage [Unknown]
  - Systemic mastocytosis [Unknown]
  - Second primary malignancy [Unknown]
  - Primary myelofibrosis [Unknown]
  - Malignant neoplasm progression [Unknown]
  - Hepatic enzyme increased [Unknown]
  - Haemorrhagic diathesis [Unknown]
  - Ascites [Unknown]
  - Cachexia [Unknown]
  - Thrombocytopenia [Unknown]
  - Splenomegaly [Unknown]
  - Epistaxis [Unknown]
  - Blood bilirubin increased [Unknown]
  - General physical condition abnormal [Unknown]

NARRATIVE: CASE EVENT DATE: 20220501
